FAERS Safety Report 14137598 (Version 1)
Quarter: 2017Q4

REPORT INFORMATION
  Report Type: Spontaneous
  Country: GB (occurrence: GB)
  Receive Date: 20171027
  Receipt Date: 20171027
  Transmission Date: 20180321
  Serious: Yes (Other)
  Sender: FDA-Public Use
  Company Number: GB-TEVA-819212ACC

PATIENT
  Age: 85 Year
  Sex: Male
  Weight: 70 kg

DRUGS (8)
  1. CLOPIDOGREL [Concomitant]
     Active Substance: CLOPIDOGREL BISULFATE
     Dosage: 1 DOSAGE FORMS DAILY;
     Dates: start: 20160902
  2. ATORVASTATIN [Concomitant]
     Active Substance: ATORVASTATIN
     Dosage: 1 DOSAGE FORMS DAILY;
     Dates: start: 20160902
  3. TRIMETHOPRIM. [Suspect]
     Active Substance: TRIMETHOPRIM
     Dates: start: 20171009
  4. FUSIDIC ACID [Concomitant]
     Active Substance: FUSIDIC ACID
     Dosage: 3 DOSAGE FORMS DAILY;
     Dates: start: 20170816, end: 20170831
  5. FLUCLOXACILLIN [Concomitant]
     Active Substance: FLUCLOXACILLIN
     Dosage: 4 DOSAGE FORMS DAILY;
     Dates: start: 20170915, end: 20170922
  6. LEVOTHYROXINE. [Concomitant]
     Active Substance: LEVOTHYROXINE
     Dosage: 1 DOSAGE FORMS DAILY; EACH MORNING
     Dates: start: 20170531
  7. FERROUS FUMARATE [Concomitant]
     Active Substance: FERROUS FUMARATE
     Indication: ILL-DEFINED DISORDER
     Dosage: 3 DOSAGE FORMS DAILY;
     Dates: start: 20170531
  8. CETIRIZINE [Concomitant]
     Active Substance: CETIRIZINE HYDROCHLORIDE
     Dosage: 1 DOSAGE FORMS DAILY;
     Dates: start: 20171009

REACTIONS (1)
  - Urticaria [Recovering/Resolving]

NARRATIVE: CASE EVENT DATE: 20171009
